FAERS Safety Report 9419284 (Version 1)
Quarter: 2013Q3

REPORT INFORMATION
  Report Type: Spontaneous
  Country: US (occurrence: US)
  Receive Date: 20130725
  Receipt Date: 20130725
  Transmission Date: 20140515
  Serious: No
  Sender: FDA-Public Use
  Company Number: US-GLAXOSMITHKLINE-A1003739A

PATIENT
  Age: 35 Year
  Sex: Male

DRUGS (4)
  1. LAMICTAL [Suspect]
     Indication: MIGRAINE
     Route: 048
     Dates: start: 201211
  2. METOPROLOL [Concomitant]
  3. MAGNESIUM [Concomitant]
  4. GLUCONATE [Concomitant]

REACTIONS (4)
  - Hypersensitivity [Recovered/Resolved]
  - Tonsillar disorder [Unknown]
  - Oropharyngeal pain [Unknown]
  - Nasal congestion [Unknown]
